FAERS Safety Report 8455288-7 (Version None)
Quarter: 2012Q2

REPORT INFORMATION
  Report Type: 
  Country: None (occurrence: None)
  Receive Date: 20120621
  Receipt Date: 20120613
  Transmission Date: 20120825
  Serious: Yes (Other)
  Sender: FDA-Public Use
  Company Number: CA-UCBSA-056551

PATIENT
  Sex: Female

DRUGS (8)
  1. HYZAAR [Concomitant]
     Indication: HYPERTENSION
     Route: 048
  2. OMEPRAZOLE (PRISOLEC) [Concomitant]
     Indication: GASTROOESOPHAGEAL REFLUX DISEASE
     Route: 048
  3. CLOXACILLIN SODIUM [Concomitant]
     Indication: CELLULITIS
  4. NORVASC [Concomitant]
     Indication: HYPERTENSION
     Route: 048
  5. ESTRADERM [Concomitant]
     Indication: MENOPAUSAL SYMPTOMS
     Route: 048
  6. IMOVANE [Concomitant]
     Indication: INSOMNIA
     Route: 048
  7. CIMZIA [Suspect]
     Indication: RHEUMATOID ARTHRITIS
     Route: 058
     Dates: start: 20120416, end: 20120423
  8. CIMZIA [Suspect]
     Route: 058
     Dates: start: 20120319, end: 20120416

REACTIONS (2)
  - STAPHYLOCOCCAL INFECTION [None]
  - ABSCESS [None]
